FAERS Safety Report 7451206-9 (Version None)
Quarter: 2011Q2

REPORT INFORMATION
  Report Type: 
  Country: None (occurrence: None)
  Receive Date: 20110502
  Receipt Date: 20110421
  Transmission Date: 20111010
  Serious: Yes (Other)
  Sender: FDA-Public Use
  Company Number: US-AMGEN-USASP2011021177

PATIENT
  Sex: Male

DRUGS (2)
  1. XGEVA [Suspect]
     Indication: PRODUCT USED FOR UNKNOWN INDICATION
  2. NPLATE [Suspect]
     Indication: AUTOIMMUNE THROMBOCYTOPENIA

REACTIONS (1)
  - INFERTILITY MALE [None]
